FAERS Safety Report 7001105-1 (Version None)
Quarter: 2010Q3

REPORT INFORMATION
  Report Type: 
  Country: None (occurrence: None)
  Receive Date: 20100920
  Receipt Date: 20100910
  Transmission Date: 20110219
  Serious: Yes (Hospitalization, Other)
  Sender: FDA-Public Use
  Company Number: US-ROCHE-703110

PATIENT
  Sex: Male

DRUGS (4)
  1. PEGINTERFERON ALFA-2A [Suspect]
     Indication: HEPATITIS C
     Dosage: PRE FILLED SYRINGE.
     Route: 065
     Dates: start: 20100217
  2. RIBAVIRIN [Suspect]
     Indication: HEPATITIS C
     Route: 065
     Dates: start: 20100217
  3. CITALOPRAM HYDROBROMIDE [Concomitant]
  4. GABAPENTIN [Concomitant]

REACTIONS (27)
  - APPENDICITIS PERFORATED [None]
  - ASTHENIA [None]
  - BURNING SENSATION [None]
  - CHOLECYSTITIS INFECTIVE [None]
  - DEPRESSION [None]
  - DIVERTICULITIS [None]
  - DIZZINESS [None]
  - DRUG DEPENDENCE [None]
  - DRUG SCREEN POSITIVE [None]
  - DYSPHONIA [None]
  - EPISTAXIS [None]
  - FOREIGN BODY [None]
  - GANGRENE [None]
  - GASTROINTESTINAL DISORDER [None]
  - HAEMORRHAGE [None]
  - HAEMORRHOIDS [None]
  - HEPATIC MASS [None]
  - HERNIA [None]
  - INSOMNIA [None]
  - INTESTINAL MASS [None]
  - MENTAL DISORDER [None]
  - NAUSEA [None]
  - PROCTALGIA [None]
  - URINARY TRACT INFECTION [None]
  - VIRAL LOAD INCREASED [None]
  - VISION BLURRED [None]
  - VOMITING [None]
